FAERS Safety Report 9801982 (Version 2)
Quarter: 2014Q1

REPORT INFORMATION
  Report Type: Spontaneous
  Country: US (occurrence: US)
  Receive Date: 20140107
  Receipt Date: 20140212
  Transmission Date: 20141002
  Serious: Yes (Other)
  Sender: FDA-Public Use
  Company Number: US-ROCHE-1329954

PATIENT
  Age: 23 Year
  Sex: Female

DRUGS (6)
  1. XOLAIR [Suspect]
     Indication: ASTHMA
     Route: 058
     Dates: start: 201008
  2. XOLAIR [Suspect]
     Route: 058
     Dates: start: 201401
  3. XOLAIR [Suspect]
     Route: 058
     Dates: start: 20140204
  4. ALLEGRA [Concomitant]
  5. PROVENTIL [Concomitant]
     Route: 055
  6. EPIPEN [Concomitant]

REACTIONS (6)
  - Hypersensitivity [Unknown]
  - Dyspnoea [Unknown]
  - Chest pain [Unknown]
  - Urticaria [Unknown]
  - Lethargy [Recovered/Resolved]
  - Skin swelling [Recovered/Resolved]
